FAERS Safety Report 26142407 (Version 1)
Quarter: 2025Q4

REPORT INFORMATION
  Report Type: Spontaneous
  Country: CN (occurrence: CN)
  Receive Date: 20251210
  Receipt Date: 20251210
  Transmission Date: 20260118
  Serious: Yes (Hospitalization)
  Sender: BEIGENE
  Company Number: CN-BEONEMEDICINES-BGN-2025-021828

PATIENT
  Age: 62 Year
  Sex: Male
  Weight: 72 kg

DRUGS (8)
  1. TISLELIZUMAB [Suspect]
     Active Substance: TISLELIZUMAB
     Indication: Lung neoplasm malignant
     Dosage: 200 MILLIGRAM, Q3WK
     Dates: start: 20251029
  2. TISLELIZUMAB [Suspect]
     Active Substance: TISLELIZUMAB
     Indication: Neuroendocrine tumour of the lung metastatic
     Dosage: 200 MILLIGRAM, Q3WK
     Route: 041
     Dates: start: 20251029
  3. TISLELIZUMAB [Suspect]
     Active Substance: TISLELIZUMAB
     Dosage: 200 MILLIGRAM, Q3WK
     Route: 041
     Dates: start: 20251029
  4. TISLELIZUMAB [Suspect]
     Active Substance: TISLELIZUMAB
     Dosage: 200 MILLIGRAM, Q3WK
     Dates: start: 20251029
  5. ETOPOSIDE [Suspect]
     Active Substance: ETOPOSIDE
     Indication: Lung neoplasm malignant
     Dosage: 0.18 GRAM, 3 TIMES EVERY 21 DAYS
     Route: 041
  6. ETOPOSIDE [Suspect]
     Active Substance: ETOPOSIDE
     Indication: Neuroendocrine tumour of the lung metastatic
     Dosage: 0.18 GRAM, 3 TIMES EVERY 21 DAYS
  7. CARBOPLATIN [Suspect]
     Active Substance: CARBOPLATIN
     Indication: Lung neoplasm malignant
     Dosage: 500 MILLIGRAM, Q3WK
     Route: 041
     Dates: start: 20251029
  8. CARBOPLATIN [Suspect]
     Active Substance: CARBOPLATIN
     Indication: Neuroendocrine tumour of the lung metastatic
     Dosage: 500 MILLIGRAM, Q3WK
     Dates: start: 20251029

REACTIONS (1)
  - Myelosuppression [Recovering/Resolving]

NARRATIVE: CASE EVENT DATE: 20251111
